FAERS Safety Report 11390120 (Version 1)
Quarter: 2015Q3

REPORT INFORMATION
  Report Type: Spontaneous
  Country: US (occurrence: None)
  Receive Date: 20150814
  Receipt Date: 20150814
  Transmission Date: 20151125
  Serious: Yes (Hospitalization)
  Sender: FDA-Public Use
  Company Number: None

PATIENT
  Age: 84 Year
  Sex: Male
  Weight: 85 kg

DRUGS (20)
  1. NEURONTIN [Concomitant]
     Active Substance: GABAPENTIN
  2. LANTUS [Concomitant]
     Active Substance: INSULIN GLARGINE
  3. MIRAPEX [Concomitant]
     Active Substance: PRAMIPEXOLE DIHYDROCHLORIDE
  4. ADVAIR HFA [Concomitant]
     Active Substance: FLUTICASONE PROPIONATE\SALMETEROL XINAFOATE
  5. NORVASC [Concomitant]
     Active Substance: AMLODIPINE BESYLATE
  6. ABILIFY [Concomitant]
     Active Substance: ARIPIPRAZOLE
  7. VITAMIN D2 [Concomitant]
     Active Substance: ERGOCALCIFEROL
  8. PROTONIX [Concomitant]
     Active Substance: PANTOPRAZOLE SODIUM
  9. IMMUNE GLOB [Concomitant]
  10. AMBIEN [Concomitant]
     Active Substance: ZOLPIDEM TARTRATE
  11. VESICARE [Concomitant]
     Active Substance: SOLIFENACIN SUCCINATE
  12. APIXIBAN [Suspect]
     Active Substance: APIXABAN
     Indication: DEEP VEIN THROMBOSIS
     Route: 048
  13. ZOLOFT [Concomitant]
     Active Substance: SERTRALINE HYDROCHLORIDE
  14. ALBUTEROL. [Concomitant]
     Active Substance: ALBUTEROL
  15. ALEVE [Suspect]
     Active Substance: NAPROXEN SODIUM
     Dosage: WITH MEALS
     Route: 048
  16. KLONOPIN [Concomitant]
     Active Substance: CLONAZEPAM
  17. PRINIVIL [Concomitant]
     Active Substance: LISINOPRIL
  18. MYCOSTATIN [Concomitant]
     Active Substance: NYSTATIN
  19. AMARYL [Concomitant]
     Active Substance: GLIMEPIRIDE
  20. ALEVE [Concomitant]
     Active Substance: NAPROXEN SODIUM

REACTIONS (3)
  - Gastric ulcer [None]
  - Haemorrhagic anaemia [None]
  - Intestinal polyp [None]

NARRATIVE: CASE EVENT DATE: 20150707
